FAERS Safety Report 25256470 (Version 2)
Quarter: 2025Q2

REPORT INFORMATION
  Report Type: Report from Study
  Country: GB (occurrence: GB)
  Receive Date: 20250430
  Receipt Date: 20250505
  Transmission Date: 20250716
  Serious: Yes (Congenital Anomaly, Other)
  Sender: TEVA
  Company Number: GB-TEVA-VS-3305019

PATIENT
  Age: 0 Day
  Sex: Female

DRUGS (6)
  1. EMTRICITABINE\TENOFOVIR DISOPROXIL [Suspect]
     Active Substance: EMTRICITABINE\TENOFOVIR DISOPROXIL
     Indication: HIV infection
     Dosage: 1 TAB/CAP, EMTRICITABINE/TENOFOVIR DISOPROXIL
     Route: 064
     Dates: start: 20240708
  2. DOLUTEGRAVIR [Suspect]
     Active Substance: DOLUTEGRAVIR
     Indication: HIV infection
     Route: 064
     Dates: start: 20240708
  3. DORAVIRINE\LAMIVUDINE\TENOFOVIR DISOPROXIL FUMARATE [Suspect]
     Active Substance: DORAVIRINE\LAMIVUDINE\TENOFOVIR DISOPROXIL FUMARATE
     Indication: HIV infection
     Dosage: 1 TAB/CAP, DORAVIRINE/LAMIVUDINE/TENOFOVIR DISOPROXIL FUMARATE
     Route: 064
     Dates: end: 20240708
  4. ASPIRIN [Concomitant]
     Active Substance: ASPIRIN
     Indication: Anticoagulant therapy
     Route: 064
  5. FOLIC ACID [Concomitant]
     Active Substance: FOLIC ACID
     Indication: Supplementation therapy
     Route: 064
  6. CYCLIZINE [Concomitant]
     Active Substance: CYCLIZINE
     Indication: Product used for unknown indication
     Route: 064

REACTIONS (7)
  - Ventricular septal defect [Unknown]
  - Cytogenetic abnormality [Unknown]
  - Aorta hypoplasia [Unknown]
  - Developmental delay [Unknown]
  - Dysmorphism [Unknown]
  - Cardiac disorder [Unknown]
  - Foetal exposure during pregnancy [Unknown]
